FAERS Safety Report 20577906 (Version 1)
Quarter: 2022Q1

REPORT INFORMATION
  Report Type: Spontaneous
  Country: FR (occurrence: FR)
  Receive Date: 20220310
  Receipt Date: 20220310
  Transmission Date: 20220423
  Serious: Yes (Hospitalization, Other)
  Sender: FDA-Public Use
  Company Number: FR-SA-SAC20220124000678

PATIENT
  Age: 53 Year
  Sex: Female

DRUGS (11)
  1. METHOTREXATE [Suspect]
     Active Substance: METHOTREXATE
     Indication: Psoriatic arthropathy
     Dosage: 5 MG, QW
  2. METHOTREXATE [Suspect]
     Active Substance: METHOTREXATE
     Dosage: 15 MG, QW
     Route: 065
  3. METHOTREXATE [Suspect]
     Active Substance: METHOTREXATE
     Dosage: 20 MG, QW
  4. PREDNISONE [Concomitant]
     Active Substance: PREDNISONE
     Indication: Product used for unknown indication
     Dosage: UNK
  5. HUMIRA [Concomitant]
     Active Substance: ADALIMUMAB
     Dosage: UNK
  6. SILVER SULFADIAZINE [Concomitant]
     Active Substance: SILVER SULFADIAZINE
     Dosage: UNK
  7. NEORAL [Concomitant]
     Active Substance: CYCLOSPORINE
     Dosage: 3 MILLIGRAM/KILOGRAM, QD
  8. TARGOCID [Concomitant]
     Active Substance: TEICOPLANIN
     Dosage: 600 MILLIGRAM
     Route: 030
  9. TALTZ [Concomitant]
     Active Substance: IXEKIZUMAB
     Dosage: UNK
  10. AUGMENTIN [Concomitant]
     Active Substance: AMOXICILLIN\CLAVULANATE POTASSIUM
     Dosage: UNK
  11. CLINDAMYCIN [Concomitant]
     Active Substance: CLINDAMYCIN
     Dosage: 600 MILLIGRAM, TID

REACTIONS (31)
  - Leukocyturia [Unknown]
  - Tooth disorder [Unknown]
  - Pustular psoriasis [Unknown]
  - Streptococcal bacteraemia [Unknown]
  - Malaise [Unknown]
  - Staphylococcal bacteraemia [Unknown]
  - Psoriatic arthropathy [Unknown]
  - Dermatitis exfoliative generalised [Unknown]
  - Nail disorder [Unknown]
  - Dermatitis psoriasiform [Unknown]
  - Enthesopathy [Unknown]
  - Diffuse alopecia [Unknown]
  - Inflammation [Unknown]
  - Pallor [Unknown]
  - Skin exfoliation [Unknown]
  - Hypertension [Unknown]
  - Polyuria [Unknown]
  - Polydipsia [Unknown]
  - Skin lesion [Recovered/Resolved]
  - Phlebitis [Unknown]
  - Tenosynovitis [Unknown]
  - Anxiety [Unknown]
  - Unevaluable event [Unknown]
  - Psoriasis [Unknown]
  - Chills [Unknown]
  - Pyrexia [Unknown]
  - Arthralgia [Unknown]
  - Nausea [Unknown]
  - Asthenia [Unknown]
  - Incorrect dose administered [Unknown]
  - Intentional product misuse [Unknown]

NARRATIVE: CASE EVENT DATE: 20150901
